FAERS Safety Report 19922652 (Version 1)
Quarter: 2021Q4

REPORT INFORMATION
  Report Type: Spontaneous
  Country: IT (occurrence: IT)
  Receive Date: 20211006
  Receipt Date: 20211006
  Transmission Date: 20220303
  Serious: No
  Sender: FDA-Public Use
  Company Number: IT-LUPIN PHARMACEUTICALS INC.-2021-18658

PATIENT
  Age: 45 Year
  Sex: Male

DRUGS (9)
  1. HYDROXYCHLOROQUINE [Suspect]
     Active Substance: HYDROXYCHLOROQUINE
     Indication: COVID-19 pneumonia
     Dosage: UNK
     Route: 065
     Dates: start: 2020
  2. ANAKINRA [Suspect]
     Active Substance: ANAKINRA
     Indication: COVID-19 pneumonia
     Dosage: UNK
     Route: 065
     Dates: start: 2020
  3. SPIRONOLACTONE [Concomitant]
     Active Substance: SPIRONOLACTONE
     Indication: Myocarditis
     Dosage: UNK
     Route: 042
     Dates: start: 2020
  4. FUROSEMIDE [Concomitant]
     Active Substance: FUROSEMIDE
     Indication: Myocarditis
     Dosage: UNK
     Route: 042
     Dates: start: 2020
  5. EPINEPHRINE [Concomitant]
     Active Substance: EPINEPHRINE
     Indication: Myocarditis
     Dosage: UNK
     Route: 065
     Dates: start: 2020
  6. NOREPINEPHRINE [Concomitant]
     Active Substance: NOREPINEPHRINE
     Indication: Myocarditis
     Dosage: UNK
     Route: 065
     Dates: start: 2020
  7. LEVOSIMENDAN [Concomitant]
     Active Substance: LEVOSIMENDAN
     Indication: Myocarditis
     Dosage: UNK
     Route: 065
     Dates: start: 2020
  8. METOPROLOL [Concomitant]
     Active Substance: METOPROLOL
     Indication: Myocarditis
     Dosage: UNK
     Route: 065
     Dates: start: 2020
  9. RAMIPRIL [Concomitant]
     Active Substance: RAMIPRIL
     Indication: Myocarditis
     Dosage: UNK
     Route: 065
     Dates: start: 2020

REACTIONS (1)
  - Off label use [Unknown]

NARRATIVE: CASE EVENT DATE: 20200101
